FAERS Safety Report 6569997-8 (Version None)
Quarter: 2010Q1

REPORT INFORMATION
  Report Type: 
  Country: None (occurrence: None)
  Receive Date: 20100204
  Receipt Date: 20100127
  Transmission Date: 20100710
  Serious: Yes (Other)
  Sender: FDA-Public Use
  Company Number: CH-WYE-G05451010

PATIENT
  Age: 30 Year
  Sex: Female

DRUGS (3)
  1. EFFEXOR [Suspect]
  2. RISPERDAL [Interacting]
     Dosage: DOSE AND FREQUENCY UNKNOWN
  3. SEROQUEL [Interacting]
     Dosage: DOSE AND FREQUENCY UNKNOWN

REACTIONS (2)
  - AKATHISIA [None]
  - DRUG INTERACTION [None]
